FAERS Safety Report 22388800 (Version 1)
Quarter: 2023Q2

REPORT INFORMATION
  Report Type: Spontaneous
  Country: BR (occurrence: None)
  Receive Date: 20230531
  Receipt Date: 20230531
  Transmission Date: 20230721
  Serious: Yes (Hospitalization)
  Sender: FDA-Public Use
  Company Number: BR-US-Provell Pharmaceuticals LLC-9404763

PATIENT
  Sex: Female

DRUGS (1)
  1. EUTHYROX [Suspect]
     Active Substance: LEVOTHYROXINE SODIUM
     Indication: Product used for unknown indication
     Dosage: THERAPY START DATE: APPROXIMATELY 35 YEARS AGO
     Route: 048

REACTIONS (3)
  - Thyroidectomy [Unknown]
  - Nervousness [Unknown]
  - Rash [Unknown]
